FAERS Safety Report 8671802 (Version 2)
Quarter: 2012Q4

REPORT INFORMATION
  Report Type: Report from Study
  Country: FR (occurrence: FR)
  Receive Date: 20120718
  Receipt Date: 20121004
  Transmission Date: 20130627
  Serious: Yes (Hospitalization)
  Sender: FDA-Public Use
  Company Number: FR-TEVA-348391ISR

PATIENT
  Age: 21 Year
  Sex: Male
  Weight: 70 kg

DRUGS (4)
  1. EFFENTORA [Suspect]
     Indication: NEURALGIA
     Dosage: 2400 Microgram Daily;
     Route: 002
     Dates: start: 20100518, end: 20100520
  2. EFFENTORA [Suspect]
     Dosage: 800 Microgram Daily;
     Route: 002
     Dates: start: 20100520
  3. TRAMADOL LP 100 MG [Concomitant]
     Indication: NEURALGIA
     Dosage: 2 Dosage forms Daily;
     Dates: start: 2010
  4. LYRICA [Concomitant]
     Indication: NEURALGIA
     Route: 048
     Dates: start: 200905

REACTIONS (4)
  - Confusional state [Recovered/Resolved]
  - Dizziness [Recovered/Resolved]
  - Off label use [Unknown]
  - Incorrect dose administered [Unknown]
